FAERS Safety Report 5232797-5 (Version None)
Quarter: 2007Q1

REPORT INFORMATION
  Report Type: 
  Country: None (occurrence: None)
  Receive Date: 20070206
  Receipt Date: 20070206
  Transmission Date: 20070707
  Serious: Yes (Hospitalization)
  Sender: FDA-Public Use
  Company Number: None

PATIENT
  Sex: Male
  Weight: 78.4723 kg

DRUGS (1)
  1. GADOLINIUM [Suspect]
     Indication: RENAL FAILURE
     Dates: start: 20060401, end: 20061031

REACTIONS (4)
  - BEDRIDDEN [None]
  - DIALYSIS [None]
  - DIPLEGIA [None]
  - NEPHROGENIC FIBROSING DERMOPATHY [None]
